FAERS Safety Report 14820694 (Version 8)
Quarter: 2019Q1

REPORT INFORMATION
  Report Type: Spontaneous
  Country: CA (occurrence: CA)
  Receive Date: 20180427
  Receipt Date: 20190219
  Transmission Date: 20190417
  Serious: Yes (Other)
  Sender: FDA-Public Use
  Company Number: CA-CELLTRION INC.-2017CA017426

PATIENT

DRUGS (12)
  1. INFLECTRA [Suspect]
     Active Substance: INFLIXIMAB-DYYB
     Dosage: 431 MG, 0,2,6 WEEKS, THEN EVERY 8 WEEKS
     Route: 042
     Dates: start: 20180418
  2. INFLECTRA [Suspect]
     Active Substance: INFLIXIMAB-DYYB
     Dosage: 460 MG, EVERY 8 WEEKS
     Route: 042
     Dates: start: 20180808
  3. INFLECTRA [Suspect]
     Active Substance: INFLIXIMAB-DYYB
     Indication: COLITIS ULCERATIVE
     Dosage: 431 MG, 0,2,6 WEEKS, THEN EVERY 8 WEEKS
     Route: 042
     Dates: start: 20171114, end: 20180220
  4. INFLECTRA [Suspect]
     Active Substance: INFLIXIMAB-DYYB
     Dosage: 460 MG, EVERY 6 WEEKS
     Route: 042
     Dates: start: 20181227
  5. INFLECTRA [Suspect]
     Active Substance: INFLIXIMAB-DYYB
     Dosage: 460 MG, EVERY 6 WEEKS
     Route: 042
     Dates: start: 20190204
  6. DIPHENHYDRAMINE. [Concomitant]
     Active Substance: DIPHENHYDRAMINE
     Indication: PREMEDICATION
  7. BETNESOL [Concomitant]
     Indication: PREMEDICATION
     Dosage: UNK
     Dates: start: 2016
  8. INFLECTRA [Suspect]
     Active Substance: INFLIXIMAB-DYYB
     Dosage: 460 MG, EVERY 6 WEEKS
     Route: 065
     Dates: start: 20181016
  9. SULFASALAZINE. [Concomitant]
     Active Substance: SULFASALAZINE
     Indication: PREMEDICATION
     Dosage: UNK
     Dates: start: 2007
  10. HYDROCORTISONE. [Concomitant]
     Active Substance: HYDROCORTISONE
     Indication: PREMEDICATION
  11. INFLECTRA [Suspect]
     Active Substance: INFLIXIMAB-DYYB
     Dosage: 460 MG, EVERY 8 WEEKS
     Route: 042
     Dates: start: 20180613, end: 20181003
  12. ACETAMINOPHEN. [Concomitant]
     Active Substance: ACETAMINOPHEN
     Indication: PREMEDICATION

REACTIONS (11)
  - Nasopharyngitis [Recovering/Resolving]
  - Influenza [Unknown]
  - Condition aggravated [Unknown]
  - Haematochezia [Recovered/Resolved]
  - Drug effect incomplete [Not Recovered/Not Resolved]
  - Blood pressure fluctuation [Unknown]
  - Malaise [Unknown]
  - Product use issue [Unknown]
  - Nausea [Unknown]
  - Paraesthesia [Unknown]
  - Frequent bowel movements [Recovered/Resolved]

NARRATIVE: CASE EVENT DATE: 2017
